APPROVED DRUG PRODUCT: BARACLUDE
Active Ingredient: ENTECAVIR
Strength: 0.5MG
Dosage Form/Route: TABLET;ORAL
Application: N021797 | Product #001 | TE Code: AB
Applicant: BRISTOL MYERS SQUIBB
Approved: Mar 29, 2005 | RLD: Yes | RS: No | Type: RX